FAERS Safety Report 19010237 (Version 3)
Quarter: 2021Q2

REPORT INFORMATION
  Report Type: Report from Study
  Country: KR (occurrence: KR)
  Receive Date: 20210316
  Receipt Date: 20210406
  Transmission Date: 20210717
  Serious: Yes (Hospitalization)
  Sender: FDA-Public Use
  Company Number: KR-CELLTRION INC.-2021KR003185

PATIENT

DRUGS (9)
  1. 5?FU [Suspect]
     Active Substance: FLUOROURACIL
     Dosage: 3888 MG EVERY 2 WEEKS
     Route: 042
     Dates: start: 20210223
  2. TARGIN CR [Concomitant]
     Active Substance: NALOXONE HYDROCHLORIDE\OXYCODONE HYDROCHLORIDE
     Indication: ABDOMINAL PAIN
     Dosage: 1 TAB, BID
     Route: 048
     Dates: start: 20210222
  3. LEUCOVORIN. [Suspect]
     Active Substance: LEUCOVORIN
     Indication: GALLBLADDER CANCER
     Dosage: 324 MG, EVERY 2 WEEKS
     Route: 042
     Dates: start: 20210223
  4. OXALIPLATIN. [Suspect]
     Active Substance: OXALIPLATIN
     Indication: GALLBLADDER CANCER
     Dosage: 137.7 MG, EVERY 2 WEEKS
     Route: 042
     Dates: start: 20210223
  5. 5?FU [Suspect]
     Active Substance: FLUOROURACIL
     Indication: GALLBLADDER CANCER
     Dosage: 648 MG, EVERY 2 WEEKS
     Route: 040
     Dates: start: 20210223
  6. ALOXI [Concomitant]
     Active Substance: PALONOSETRON HYDROCHLORIDE
     Indication: PROPHYLAXIS
     Dosage: 0.25 MG, PRN
     Route: 042
     Dates: start: 20210223
  7. TARGIN CR [Concomitant]
     Active Substance: NALOXONE HYDROCHLORIDE\OXYCODONE HYDROCHLORIDE
     Indication: FLANK PAIN
  8. HERZUMA [Suspect]
     Active Substance: TRASTUZUMAB-PKRB
     Indication: GALLBLADDER CANCER
     Dosage: 354 MG, EVERY 2 WEEKS
     Route: 042
     Dates: start: 20210223
  9. NAXEN?F [Concomitant]
     Indication: PROPHYLAXIS
     Dosage: 250 MG, BID
     Route: 048
     Dates: start: 20210222

REACTIONS (2)
  - Off label use [Unknown]
  - Blood bilirubin increased [Not Recovered/Not Resolved]

NARRATIVE: CASE EVENT DATE: 20210309
